FAERS Safety Report 5049355-8 (Version None)
Quarter: 2006Q3

REPORT INFORMATION
  Report Type: 
  Country: None (occurrence: None)
  Receive Date: 20060712
  Receipt Date: 20060710
  Transmission Date: 20061208
  Serious: Yes (Hospitalization, Other)
  Sender: FDA-Public Use
  Company Number: 2006-05-1546

PATIENT
  Age: 51 Year
  Sex: Male

DRUGS (7)
  1. PAXIL [Suspect]
     Indication: DEPRESSION
     Route: 048
     Dates: start: 20060101, end: 20060101
  2. NEORAL [Concomitant]
     Route: 048
  3. CALCIUM + VITAMIN D [Concomitant]
     Route: 048
  4. CELLCEPT [Concomitant]
     Route: 048
  5. MAGNESIUM OXIDE [Concomitant]
     Route: 048
  6. URSODEOXYCHOLIC ACID [Concomitant]
     Route: 048
  7. PROTONIX [Concomitant]
     Route: 048

REACTIONS (3)
  - ANXIETY [None]
  - EMOTIONAL DISORDER [None]
  - INSOMNIA [None]
